FAERS Safety Report 21714017 (Version 1)
Quarter: 2022Q4

REPORT INFORMATION
  Report Type: Spontaneous
  Country: US (occurrence: None)
  Receive Date: 20221209
  Receipt Date: 20221209
  Transmission Date: 20230112
  Serious: Yes (Hospitalization)
  Sender: FDA-Public Use
  Company Number: None

PATIENT
  Sex: Female

DRUGS (1)
  1. SILDENAFIL CITRATE [Suspect]
     Active Substance: SILDENAFIL CITRATE
     Indication: Idiopathic pulmonary fibrosis
     Dosage: 20 MG THREE TIMES DAILY ORAL?
     Route: 048
     Dates: start: 201905

REACTIONS (3)
  - Appendicitis perforated [None]
  - Diarrhoea [None]
  - Therapy interrupted [None]
